FAERS Safety Report 19764378 (Version 1)
Quarter: 2021Q3

REPORT INFORMATION
  Report Type: Other
  Country: RU (occurrence: RU)
  Receive Date: 20210830
  Receipt Date: 20210830
  Transmission Date: 20211014
  Serious: Yes (Death, Other)
  Sender: FDA-Public Use
  Company Number: RU-ROCHE-2900137

PATIENT

DRUGS (1)
  1. RITUXIMAB. [Suspect]
     Active Substance: RITUXIMAB
     Indication: SYSTEMIC SCLERODERMA
     Route: 041

REACTIONS (11)
  - Hypersensitivity pneumonitis [Unknown]
  - Arthritis bacterial [Unknown]
  - Cerebral ischaemia [Unknown]
  - Lymphoma [Unknown]
  - Pneumonia [Fatal]
  - Sepsis [Fatal]
  - Infusion related reaction [Unknown]
  - Pancreatitis acute [Unknown]
  - Pulmonary embolism [Unknown]
  - Infection [Unknown]
  - Venous thrombosis limb [Unknown]
